FAERS Safety Report 7374482-X (Version None)
Quarter: 2011Q1

REPORT INFORMATION
  Report Type: 
  Country: None (occurrence: None)
  Receive Date: 20110325
  Receipt Date: 20110107
  Transmission Date: 20110831
  Serious: Yes (Other)
  Sender: FDA-Public Use
  Company Number: US-MYLANLABS-2011S1000701

PATIENT
  Age: 58 Year
  Sex: Female
  Weight: 90.72 kg

DRUGS (4)
  1. OXYCODONE [Concomitant]
     Indication: BREAKTHROUGH PAIN
     Dates: start: 20070101
  2. NORVASC [Concomitant]
     Indication: BLOOD PRESSURE INCREASED
  3. FENTANYL-100 [Suspect]
     Indication: BACK PAIN
     Dosage: CHANGED Q. 72 HOURS.
     Route: 062
     Dates: start: 20060101
  4. FENTANYL-100 [Suspect]
     Indication: PAIN IN EXTREMITY
     Dosage: CHANGED Q. 72 HOURS.
     Route: 062
     Dates: start: 20060101

REACTIONS (3)
  - DRUG EFFECT INCREASED [None]
  - FATIGUE [None]
  - DYSPNOEA [None]
